FAERS Safety Report 12711250 (Version 1)
Quarter: 2016Q3

REPORT INFORMATION
  Report Type: Spontaneous
  Country: GB (occurrence: GB)
  Receive Date: 20160902
  Receipt Date: 20160902
  Transmission Date: 20161109
  Serious: Yes (Death, Other)
  Sender: FDA-Public Use
  Company Number: GB-ACCORD-043538

PATIENT
  Age: 60 Year
  Sex: Female

DRUGS (1)
  1. CAPECITABINE. [Suspect]
     Active Substance: CAPECITABINE
     Indication: BREAST CANCER METASTATIC
     Dosage: 50% OF FULL DOSE
     Route: 048
     Dates: start: 20160119, end: 20160123

REACTIONS (4)
  - Pancytopenia [Fatal]
  - Mucosal inflammation [Fatal]
  - Dihydropyrimidine dehydrogenase deficiency [Unknown]
  - Diarrhoea [Fatal]

NARRATIVE: CASE EVENT DATE: 20160122
